FAERS Safety Report 13580480 (Version 1)
Quarter: 2017Q2

REPORT INFORMATION
  Report Type: Spontaneous
  Country: IT (occurrence: IT)
  Receive Date: 20170525
  Receipt Date: 20170525
  Transmission Date: 20170830
  Serious: Yes (Other)
  Sender: FDA-Public Use
  Company Number: IT-SUN PHARMACEUTICAL INDUSTRIES LTD-2017RR-141192

PATIENT
  Age: 41 Year
  Sex: Female

DRUGS (2)
  1. VENLAFAXINE [Suspect]
     Active Substance: VENLAFAXINE HYDROCHLORIDE
     Indication: DRUG USE DISORDER
     Dosage: TOTAL
     Route: 048
     Dates: start: 20170411, end: 20170411
  2. TRITTICO [Suspect]
     Active Substance: TRAZODONE HYDROCHLORIDE
     Indication: DRUG USE DISORDER
     Dosage: TOTAL
     Route: 048
     Dates: start: 20170411, end: 20170411

REACTIONS (2)
  - Poisoning [Recovering/Resolving]
  - Drug use disorder [Recovering/Resolving]

NARRATIVE: CASE EVENT DATE: 20170411
